FAERS Safety Report 5564674-4 (Version None)
Quarter: 2007Q4

REPORT INFORMATION
  Report Type: 
  Country: None (occurrence: None)
  Receive Date: 20071213
  Receipt Date: 20071213
  Transmission Date: 20080405
  Serious: Yes (Hospitalization)
  Sender: FDA-Public Use
  Company Number: None

PATIENT
  Age: 61 Year
  Sex: Male

DRUGS (1)
  1. OXYCODONE HCL [Suspect]
     Indication: PAIN
     Dosage: 10MG QID PO
     Route: 048
     Dates: start: 20050829, end: 20071204

REACTIONS (3)
  - ACCIDENTAL OVERDOSE [None]
  - MENTAL STATUS CHANGES [None]
  - SEDATION [None]
